FAERS Safety Report 7064194 (Version 23)
Quarter: 2014Q1

REPORT INFORMATION
  Report Type: Spontaneous
  Country: US (occurrence: US)
  Receive Date: 20090727
  Receipt Date: 20140206
  Transmission Date: 20141002
  Serious: Yes (Other)
  Sender: FDA-Public Use
  Company Number: PHEH2009US07671

PATIENT
  Sex: Female

DRUGS (14)
  1. AREDIA [Suspect]
     Dosage: 90 MG, Q3MO
     Route: 042
  2. ZOMETA [Suspect]
     Indication: PLASMA CELL MYELOMA
     Dosage: 4 MG, QMO
     Route: 041
  3. ZOMETA [Suspect]
     Dosage: 3 MG,
     Dates: start: 20120123
  4. FOSAMAX [Suspect]
  5. ARIMIDEX [Concomitant]
  6. FLONASE [Concomitant]
  7. SYNTHROID [Concomitant]
  8. PERIDEX [Concomitant]
  9. COUMADIN ^BOOTS^ [Concomitant]
     Dosage: 2 MG, QD
     Route: 048
  10. TYLOX [Concomitant]
  11. CYCLOSPORIN A [Concomitant]
     Dosage: 150 MG, BID
  12. DAPSONE [Concomitant]
     Dosage: 100 MG,
  13. PREMPRO [Concomitant]
     Dosage: 1 DF,
  14. ARIMIDEX ^ASTRAZENECA^ [Concomitant]

REACTIONS (121)
  - Invasive ductal breast carcinoma [Unknown]
  - Graft versus host disease [Unknown]
  - Oesophageal dilatation [Unknown]
  - Gastric ulcer [Unknown]
  - Foot fracture [Unknown]
  - Hernia [Unknown]
  - Uterine leiomyoma [Unknown]
  - Spinal compression fracture [Unknown]
  - Spinal column stenosis [Unknown]
  - Scoliosis [Unknown]
  - Pharyngo-oesophageal diverticulum [Unknown]
  - Spinal osteoarthritis [Unknown]
  - Arteriosclerosis [Unknown]
  - Pulmonary mass [Unknown]
  - Lymphoma [Unknown]
  - Upper respiratory tract infection [Unknown]
  - Dyspnoea [Unknown]
  - Osteonecrosis of jaw [Unknown]
  - General physical health deterioration [Unknown]
  - Pain [Unknown]
  - Anxiety [Unknown]
  - Anhedonia [Unknown]
  - Disability [Unknown]
  - Swelling face [Unknown]
  - Plasma cell myeloma in remission [Unknown]
  - Influenza [Unknown]
  - Pathological fracture [Unknown]
  - Fall [Unknown]
  - Skin papilloma [Unknown]
  - Papule [Unknown]
  - Folliculitis [Unknown]
  - Fibrous histiocytoma [Unknown]
  - Actinic keratosis [Unknown]
  - Abnormal loss of weight [Unknown]
  - Oesophageal candidiasis [Unknown]
  - Hepatitis [Unknown]
  - Bone lesion [Unknown]
  - Cervicitis [Unknown]
  - Metaplasia [Unknown]
  - Herpes zoster [Unknown]
  - Osteoporosis [Unknown]
  - Hip fracture [Unknown]
  - Humerus fracture [Unknown]
  - Asthma [Unknown]
  - Chest pain [Unknown]
  - Metastases to spine [Unknown]
  - Hypertrophy [Unknown]
  - Hypothyroidism [Unknown]
  - Bone density decreased [Unknown]
  - Dysphagia [Unknown]
  - Rash [Unknown]
  - Visual impairment [Unknown]
  - Cataract [Unknown]
  - Lordosis [Unknown]
  - Arthralgia [Unknown]
  - Osteoarthritis [Unknown]
  - Melanocytic hyperplasia [Unknown]
  - Pubis fracture [Unknown]
  - Kyphosis [Unknown]
  - Vertebral foraminal stenosis [Unknown]
  - Intervertebral disc protrusion [Unknown]
  - Pyrexia [Unknown]
  - Osteopenia [Unknown]
  - Spinal deformity [Unknown]
  - Bronchitis [Unknown]
  - Sinusitis [Unknown]
  - Restrictive pulmonary disease [Unknown]
  - Sinus congestion [Unknown]
  - Wheezing [Unknown]
  - Obstructive airways disorder [Unknown]
  - Neuropathy peripheral [Unknown]
  - Osteosclerosis [Unknown]
  - Aortic arteriosclerosis [Unknown]
  - Exposed bone in jaw [Unknown]
  - Gastrooesophageal reflux disease [Unknown]
  - Eye swelling [Unknown]
  - Exostosis [Unknown]
  - Seasonal allergy [Unknown]
  - Eye pruritus [Unknown]
  - Dysphonia [Unknown]
  - Blepharitis [Unknown]
  - Graft versus host disease in liver [Unknown]
  - Rhinitis [Unknown]
  - Loose tooth [Unknown]
  - Urethral caruncle [Unknown]
  - Cervical dysplasia [Unknown]
  - Joint dislocation [Unknown]
  - Hypokalaemia [Unknown]
  - Neuralgia [Unknown]
  - Vulvovaginal dryness [Unknown]
  - Dyspareunia [Unknown]
  - Uterine enlargement [Unknown]
  - Paraesthesia [Unknown]
  - Spondylolisthesis [Unknown]
  - Facet joint syndrome [Unknown]
  - Stress urinary incontinence [Unknown]
  - Vaginal infection [Unknown]
  - Sensation of heaviness [Unknown]
  - Mouth ulceration [Unknown]
  - Cough [Unknown]
  - Constipation [Unknown]
  - Decreased appetite [Unknown]
  - Tongue geographic [Unknown]
  - Facial pain [Unknown]
  - Second primary malignancy [Unknown]
  - Proteinuria [Unknown]
  - Localised infection [Unknown]
  - Paronychia [Unknown]
  - Myositis ossificans [Unknown]
  - Gastroenteritis [Unknown]
  - Vaginal cyst [Unknown]
  - Perineurial cyst [Unknown]
  - Haemangioma of bone [Unknown]
  - Radiculopathy [Unknown]
  - Local swelling [Unknown]
  - Leukaemia [Unknown]
  - Pulmonary fibrosis [Unknown]
  - Human rhinovirus test positive [Unknown]
  - Varicose vein [Unknown]
  - Muscle spasms [Unknown]
  - Dizziness [Unknown]
